FAERS Safety Report 24312571 (Version 1)
Quarter: 2024Q3

REPORT INFORMATION
  Report Type: Spontaneous
  Country: CH (occurrence: CH)
  Receive Date: 20240912
  Receipt Date: 20240912
  Transmission Date: 20241017
  Serious: Yes (Hospitalization, Other)
  Sender: PFIZER
  Company Number: None

PATIENT
  Age: 64 Year
  Sex: Female

DRUGS (10)
  1. CYTARABINE [Suspect]
     Active Substance: CYTARABINE
     Indication: Chronic myeloid leukaemia
     Dosage: 40 MG, CYCLIC, SEVENTH CYCLE OF THERAPY ADMINISTERED ON 23JUL2024
     Route: 037
     Dates: start: 20231025, end: 20240723
  2. SOLU-CORTEF [Suspect]
     Active Substance: HYDROCORTISONE SODIUM SUCCINATE
     Indication: Chronic myeloid leukaemia
     Dosage: 22.5 MG, CYCLIC, SEVENTH CYCLE OF THERAPY ADMINISTERED ON 23JUL2024
     Route: 037
     Dates: start: 20231025, end: 20240723
  3. BLINCYTO [Suspect]
     Active Substance: BLINATUMOMAB
     Indication: Chronic myeloid leukaemia
     Dosage: 28 UG, CYCLIC D1-D28, FIFTH CYCLE OF THERAPY (ADMINISTERED ON 30APR2024)
     Route: 040
     Dates: start: 20231107, end: 20240430
  4. ICLUSIG [Suspect]
     Active Substance: PONATINIB\PONATINIB HYDROCHLORIDE
     Indication: Chronic myeloid leukaemia
     Dosage: 15 MG, CYCLIC, FIFTH CYCLE OF THERAPY (ADMINISTERED ON 30APR2024)
     Route: 048
     Dates: start: 20231107, end: 20240430
  5. METHOTREXATE [Suspect]
     Active Substance: METHOTREXATE
     Indication: Chronic myeloid leukaemia
     Dosage: 15 MG, CYCLIC, SEVENTH CYCLE OF THERAPY ADMINISTERED ON 23JUL2024
     Route: 037
     Dates: start: 20231025, end: 20240723
  6. BACTRIM [Concomitant]
     Active Substance: SULFAMETHOXAZOLE\TRIMETHOPRIM
     Dosage: 1 DF, 1 TABLET 3 TIMES A WEEK CHRONIC THERAPY
     Route: 048
  7. VALACYCLOVIR HYDROCHLORIDE [Concomitant]
     Active Substance: VALACYCLOVIR HYDROCHLORIDE
     Dosage: CHRONIC THERAPY
     Route: 048
  8. AMLODIPINE MESYLATE [Concomitant]
     Active Substance: AMLODIPINE MESYLATE
     Dosage: 10 MG, DAILY CHRONIC THERAPY
     Route: 048
  9. CO CANDESARTAN SPIRIG [Concomitant]
     Dosage: 1 DF CHRONIC THERAPY
     Route: 048
  10. FOLIC ACID [Concomitant]
     Active Substance: FOLIC ACID
     Dosage: 5 MG, DAILY CHRONIC THERAPY
     Route: 048

REACTIONS (1)
  - Acute psychosis [Recovering/Resolving]

NARRATIVE: CASE EVENT DATE: 20240701
